FAERS Safety Report 7989602-3 (Version None)
Quarter: 2011Q4

REPORT INFORMATION
  Report Type: 
  Country: None (occurrence: None)
  Receive Date: 20111219
  Receipt Date: 20110907
  Transmission Date: 20120403
  Serious: No
  Sender: FDA-Public Use
  Company Number: US-ASTRAZENECA-2011SE53804

PATIENT
  Age: 81 Year
  Sex: Female
  Weight: 68 kg

DRUGS (4)
  1. COUMADIN [Concomitant]
     Indication: CARDIAC DISORDER
  2. POTASSIUM CHLORIDE [Concomitant]
  3. CRESTOR [Suspect]
     Route: 048
     Dates: start: 20110830, end: 20110831
  4. PAIN MEDICATION [Concomitant]
     Indication: OEDEMA PERIPHERAL

REACTIONS (3)
  - OEDEMA PERIPHERAL [None]
  - GAIT DISTURBANCE [None]
  - PAIN IN EXTREMITY [None]
